FAERS Safety Report 5116692-8 (Version None)
Quarter: 2006Q3

REPORT INFORMATION
  Report Type: 
  Country: None (occurrence: None)
  Receive Date: 20060928
  Receipt Date: 20060629
  Transmission Date: 20061208
  Serious: Yes (Hospitalization, Disabling)
  Sender: FDA-Public Use
  Company Number: US-ROCHE-454067

PATIENT
  Age: 17 Year
  Sex: Female

DRUGS (2)
  1. ACCUTANE [Suspect]
     Indication: ACNE
     Dosage: ISOTRETINOIN WAS TAKEN INTERMITTENTLY (NO DATES PROVIDED). INDICATION REPORTED AS INTERMITTENT FOR +
     Route: 048
  2. METHIMAZOLE [Concomitant]
     Indication: HYPERTHYROIDISM
     Dosage: DOSAGE REGIMEN REPORTED AS DAILY.
     Route: 048

REACTIONS (5)
  - BRAIN CONTUSION [None]
  - BRAIN OEDEMA [None]
  - FALL [None]
  - LOSS OF CONSCIOUSNESS [None]
  - LUNG INJURY [None]
